FAERS Safety Report 7981611-3 (Version None)
Quarter: 2011Q4

REPORT INFORMATION
  Report Type: 
  Country: None (occurrence: None)
  Receive Date: 20111215
  Receipt Date: 20111209
  Transmission Date: 20120403
  Serious: Yes (Other)
  Sender: FDA-Public Use
  Company Number: ZA-BRISTOL-MYERS SQUIBB COMPANY-16250581

PATIENT
  Age: 42 Year
  Sex: Male

DRUGS (3)
  1. CISPLATIN [Concomitant]
     Indication: HEAD AND NECK CANCER
  2. ERBITUX [Suspect]
     Indication: HEAD AND NECK CANCER
     Dosage: NO OF INF:5
     Route: 042
     Dates: start: 20110501
  3. FLUOROURACIL [Concomitant]
     Indication: HEAD AND NECK CANCER

REACTIONS (3)
  - MUSCULAR WEAKNESS [None]
  - HYPOAESTHESIA [None]
  - PAIN [None]
